FAERS Safety Report 12929563 (Version 2)
Quarter: 2017Q1

REPORT INFORMATION
  Report Type: Spontaneous
  Country: FR (occurrence: FR)
  Receive Date: 20161110
  Receipt Date: 20170209
  Transmission Date: 20170428
  Serious: Yes (Hospitalization)
  Sender: FDA-Public Use
  Company Number: FR-AMGEN-FRASP2016156311

PATIENT
  Age: 53 Year
  Sex: Female

DRUGS (6)
  1. BLEOMYCIN [Concomitant]
     Active Substance: BLEOMYCIN SULFATE
     Indication: LYMPHOMA
     Dosage: UNK, D1 D15 EVERY 28 DAYS
     Dates: start: 20160422
  2. VINBLASTINE [Concomitant]
     Active Substance: VINBLASTINE
     Indication: LYMPHOMA
     Dosage: UNK, D1 D15 EVERY 28 DAYS
     Dates: start: 20160422
  3. NEULASTA [Suspect]
     Active Substance: PEGFILGRASTIM
     Dosage: 6 MG, Q2WK
     Route: 058
     Dates: start: 2016
  4. DACARBAZINE. [Concomitant]
     Active Substance: DACARBAZINE
     Indication: LYMPHOMA
     Dosage: UNK, D1 D15 EVERY 28 DAYS
     Dates: start: 20160422
  5. DOXORUBICINE [Concomitant]
     Active Substance: DOXORUBICIN
     Indication: LYMPHOMA
     Dosage: UNK, D1 D15 EVERY 28 DAYS
     Dates: start: 20160422
  6. NEULASTA [Suspect]
     Active Substance: PEGFILGRASTIM
     Indication: PRODUCT USED FOR UNKNOWN INDICATION
     Dosage: 6 MG, Q2WK
     Route: 058
     Dates: start: 201604, end: 201607

REACTIONS (1)
  - Vasculitis [Recovering/Resolving]

NARRATIVE: CASE EVENT DATE: 20160710
